FAERS Safety Report 9008120 (Version 1)
Quarter: 2012Q4

REPORT INFORMATION
  Report Type: Spontaneous
  Country: RO (occurrence: None)
  Receive Date: 20121227
  Receipt Date: 20121227
  Transmission Date: 20130627
  Serious: Yes (Hospitalization)
  Sender: FDA-Public Use
  Company Number: FK201204019

PATIENT
  Age: 46 Year
  Sex: Female
  Weight: 75 kg

DRUGS (7)
  1. PROPOFOL [Suspect]
     Indication: INDUCTION OF ANAESTHESIA
     Route: 040
     Dates: start: 20121120, end: 20121120
  2. AMPICILLIN [Suspect]
     Indication: ANTIBIOTIC PROPHYLAXIS
     Dates: start: 20121120, end: 20121120
  3. ESMERON [Suspect]
     Indication: NEUROMUSCULAR BLOCKING THERAPY
     Dates: start: 20121120, end: 20121120
  4. FENTANYL (FENTANYL) (FENTANYL) [Suspect]
     Indication: ANALGESIC THERAPY
     Dates: start: 20121120, end: 20121120
  5. OMEPRAZOLE (OMEPRAZOLE) (OMEPRAZOLE) [Suspect]
  6. DEXAMETHASONE (DEXAMETHASONE) (DEXAMETHASONE) [Suspect]
     Indication: PRODUCT USED FOR UNKNOWN INDICATION
  7. DORMICUM (NITRAZEPAM) (NITRAZEPAM) [Suspect]
     Indication: SEDATION
     Dates: start: 20121120, end: 20121120

REACTIONS (7)
  - Chills [None]
  - Hypotension [None]
  - Tachycardia [None]
  - Vomiting [None]
  - Psychomotor hyperactivity [None]
  - Pyrexia [None]
  - Haemodynamic instability [None]
